FAERS Safety Report 4293057-2 (Version None)
Quarter: 2004Q1

REPORT INFORMATION
  Report Type: 
  Country: None (occurrence: None)
  Receive Date: 20040210
  Receipt Date: 20040129
  Transmission Date: 20041129
  Serious: Yes (Other)
  Sender: FDA-Public Use
  Company Number: US-JNJFOC-20031200383

PATIENT
  Age: 32 Year
  Sex: Female
  Weight: 56.6996 kg

DRUGS (10)
  1. REMICADE [Suspect]
     Indication: CROHN'S DISEASE
     Dosage: 300 MG, INTRAVENOUS
     Route: 042
     Dates: start: 20031027
  2. REMICADE [Suspect]
     Indication: CROHN'S DISEASE
     Dosage: 300 MG, INTRAVENOUS
     Route: 042
     Dates: start: 20031118
  3. ASACOL [Concomitant]
  4. IMURAN [Concomitant]
  5. NEXIUM [Concomitant]
  6. LEXAPRO (ALL OTHER THERAPEUTIC PRODUCTS) [Concomitant]
  7. TYLENOL [Concomitant]
  8. BENADRYL [Concomitant]
  9. REMICADE [Suspect]
  10. REMICADE [Suspect]

REACTIONS (8)
  - ASTHMA [None]
  - DYSPNOEA [None]
  - HAEMOPTYSIS [None]
  - INFUSION RELATED REACTION [None]
  - PAIN [None]
  - PULMONARY FIBROSIS [None]
  - PYREXIA [None]
  - RASH PRURITIC [None]
